FAERS Safety Report 10016000 (Version 1)
Quarter: 2014Q1

REPORT INFORMATION
  Report Type: Report from Study
  Country: BR (occurrence: BR)
  Receive Date: 20140317
  Receipt Date: 20140317
  Transmission Date: 20141002
  Serious: Yes (Other)
  Sender: FDA-Public Use
  Company Number: PHHY2014BR031049

PATIENT
  Sex: Female
  Weight: 98 kg

DRUGS (3)
  1. DIOVAN HCT [Suspect]
     Indication: HYPERTENSION
     Dosage: 1 DF (VALS 320 MG, HYDR 12.5 MG) DAILY
     Route: 048
  2. ATENOLOL [Concomitant]
     Indication: HYPERTENSION
     Dosage: 1 DF (50 MG), UNK
  3. SIMVASTATIN [Concomitant]
     Indication: BLOOD CHOLESTEROL ABNORMAL
     Dosage: 1 DF (20 MG), UNK

REACTIONS (12)
  - Intervertebral disc protrusion [Unknown]
  - Spinal cord disorder [Unknown]
  - Scoliosis [Unknown]
  - Tendon injury [Unknown]
  - Limb injury [Unknown]
  - Nervous system disorder [Unknown]
  - Memory impairment [Unknown]
  - Pain [Unknown]
  - Urine potassium abnormal [Unknown]
  - Pollakiuria [Unknown]
  - Muscle spasms [Unknown]
  - Insomnia [Unknown]
